FAERS Safety Report 5384026-X (Version None)
Quarter: 2007Q3

REPORT INFORMATION
  Report Type: 
  Country: None (occurrence: None)
  Receive Date: 20070711
  Receipt Date: 20070702
  Transmission Date: 20080115
  Serious: Yes (Other)
  Sender: FDA-Public Use
  Company Number: US-ROCHE-484475

PATIENT
  Age: 40 Year
  Sex: Female

DRUGS (5)
  1. PEGASYS [Suspect]
     Indication: HEPATITIS C VIRUS
     Dosage: PATIENT REPORTED TO BE ON PEGASYS 180.
     Route: 065
     Dates: start: 20070207
  2. RIBAVIRIN [Suspect]
     Indication: HEPATITIS C VIRUS
     Route: 065
     Dates: start: 20070207
  3. RIBAVIRIN [Suspect]
     Dosage: ON AN UNKNOWN DATE THE DOSE OF RIBAVIRIN WAS REDUCED TO 1000 MG.
     Route: 065
  4. CLINDAMYCIN HCL [Concomitant]
  5. ERYTHROMYCIN [Concomitant]

REACTIONS (11)
  - ABNORMAL DREAMS [None]
  - BREAST DISCHARGE [None]
  - CLAVICLE FRACTURE [None]
  - COUGH [None]
  - DYSGEUSIA [None]
  - FALL [None]
  - FOOD CRAVING [None]
  - HEADACHE [None]
  - INSOMNIA [None]
  - PAIN [None]
  - SINUSITIS [None]
